FAERS Safety Report 25615393 (Version 1)
Quarter: 2025Q3

REPORT INFORMATION
  Report Type: Spontaneous
  Country: CN (occurrence: CN)
  Receive Date: 20250729
  Receipt Date: 20250729
  Transmission Date: 20251021
  Serious: Yes (Hospitalization, Other)
  Sender: JOHNSON AND JOHNSON
  Company Number: CN-JNJFOC-20250734712

PATIENT
  Sex: Female
  Weight: 65 kg

DRUGS (1)
  1. XARELTO [Suspect]
     Active Substance: RIVAROXABAN
     Indication: Atrial fibrillation
     Dosage: 10 MG, QD
     Route: 048
     Dates: start: 20250417, end: 20250726

REACTIONS (12)
  - Pneumonia pseudomonal [Unknown]
  - Epilepsy [Unknown]
  - Cerebellar haemorrhage [Unknown]
  - Cerebral haemorrhage [Unknown]
  - Cerebrovascular accident [Unknown]
  - Haematoma [Recovering/Resolving]
  - Fibrin D dimer increased [Unknown]
  - Alpha 1 foetoprotein abnormal [Unknown]
  - Cholelithiasis [Unknown]
  - Product prescribing issue [Unknown]
  - Incorrect dose administered [Unknown]
  - Cyanosis [Recovering/Resolving]

NARRATIVE: CASE EVENT DATE: 20250101
